FAERS Safety Report 15812656 (Version 3)
Quarter: 2019Q3

REPORT INFORMATION
  Report Type: Spontaneous
  Country: US (occurrence: US)
  Receive Date: 20190111
  Receipt Date: 20190725
  Transmission Date: 20191004
  Serious: Yes (Other)
  Sender: FDA-Public Use
  Company Number: US-SA-2019SA007174

PATIENT
  Age: 62 Year
  Sex: Female

DRUGS (1)
  1. DUPIXENT [Suspect]
     Active Substance: DUPILUMAB
     Indication: DERMATITIS ATOPIC
     Dosage: 300 MG, QOW
     Route: 058
     Dates: start: 20180731

REACTIONS (5)
  - Dermatitis atopic [Unknown]
  - Staphylococcal infection [Unknown]
  - Hordeolum [Unknown]
  - Oral herpes [Unknown]
  - Atrial fibrillation [Unknown]
